FAERS Safety Report 14302328 (Version 1)
Quarter: 2017Q4

REPORT INFORMATION
  Report Type: Spontaneous
  Country: US (occurrence: US)
  Receive Date: 20171219
  Receipt Date: 20171219
  Transmission Date: 20180321
  Serious: No
  Sender: FDA-Public Use
  Company Number: US-SUPERNUS PHARMACEUTICALS, INC.-2017SUP00167

PATIENT
  Sex: Female

DRUGS (1)
  1. TROKENDI XR [Suspect]
     Active Substance: TOPIRAMATE
     Indication: MIGRAINE
     Dosage: 125 MG, UNK
     Route: 048
     Dates: start: 201403

REACTIONS (4)
  - Migraine [Unknown]
  - Drug effect incomplete [Unknown]
  - Fatigue [Unknown]
  - Fibromyalgia [Unknown]
